FAERS Safety Report 8099000-2 (Version None)
Quarter: 2012Q1

REPORT INFORMATION
  Report Type: 
  Country: None (occurrence: None)
  Receive Date: 20120126
  Receipt Date: 20120103
  Transmission Date: 20120608
  Serious: Yes (Death)
  Sender: FDA-Public Use
  Company Number: B0773572A

PATIENT
  Age: 46 Year
  Sex: Female

DRUGS (3)
  1. ETHANOL (FORMULATION UNKNOWN) (GENERIC) (ALCOHOL) [Suspect]
     Dosage: ORAL
     Route: 048
  2. DIGOXIN [Suspect]
     Dosage: ORAL
     Route: 048
  3. PARACETAMOL + CODEINE (FORMULATION UNKNOWN) (GENERIC) 9ACETAMINOPHEN + [Suspect]
     Dosage: ORAL
     Route: 048

REACTIONS (1)
  - COMPLETED SUICIDE [None]
